FAERS Safety Report 5329776-6 (Version None)
Quarter: 2007Q2

REPORT INFORMATION
  Report Type: 
  Country: None (occurrence: None)
  Receive Date: 20070517
  Receipt Date: 20070517
  Transmission Date: 20071010
  Serious: Yes (Other)
  Sender: FDA-Public Use
  Company Number: None

PATIENT
  Age: 28 Year
  Sex: Female
  Weight: 68.0396 kg

DRUGS (4)
  1. TOPAMAX [Suspect]
     Indication: MIGRAINE
     Dosage: 25 MG PILLS UP TO 125 IN 4 WKS PO
     Route: 048
     Dates: start: 20070205, end: 20070401
  2. METFORMIN HCL [Concomitant]
  3. SPIRONOLACTONE [Concomitant]
  4. NUVORING [Concomitant]

REACTIONS (6)
  - ALOPECIA [None]
  - ANXIETY [None]
  - CONDITION AGGRAVATED [None]
  - DISTURBANCE IN SOCIAL BEHAVIOUR [None]
  - OBSESSIVE THOUGHTS [None]
  - PANIC DISORDER [None]
